FAERS Safety Report 23132216 (Version 2)
Quarter: 2023Q4

REPORT INFORMATION
  Report Type: Spontaneous
  Country: US (occurrence: None)
  Receive Date: 20231101
  Receipt Date: 20231130
  Transmission Date: 20240110
  Serious: Yes (Hospitalization)
  Sender: FDA-Public Use
  Company Number: 2023A242389

PATIENT
  Age: 21220 Day
  Sex: Female
  Weight: 96.2 kg

DRUGS (3)
  1. BYDUREON BCISE [Suspect]
     Active Substance: EXENATIDE
     Indication: Diabetes mellitus
     Route: 058
  2. BYDUREON BCISE [Suspect]
     Active Substance: EXENATIDE
     Indication: Diabetes mellitus
     Route: 058
     Dates: end: 202310
  3. BYDUREON BCISE [Suspect]
     Active Substance: EXENATIDE
     Indication: Diabetes mellitus
     Route: 058
     Dates: start: 20231023

REACTIONS (10)
  - Injection site abscess [Recovering/Resolving]
  - Nervousness [Unknown]
  - Diarrhoea [Unknown]
  - Feeling abnormal [Unknown]
  - Injection site urticaria [Unknown]
  - Injection site pain [Unknown]
  - Injection site mass [Recovered/Resolved]
  - Injection site discharge [Unknown]
  - Device defective [Unknown]
  - Incorrect dose administered [Unknown]

NARRATIVE: CASE EVENT DATE: 20230925
